FAERS Safety Report 7315992-0 (Version None)
Quarter: 2011Q1

REPORT INFORMATION
  Report Type: 
  Country: None (occurrence: None)
  Receive Date: 20110225
  Receipt Date: 20110215
  Transmission Date: 20110831
  Serious: Yes (Disabling, Other)
  Sender: FDA-Public Use
  Company Number: PHHY2011BR13552

PATIENT
  Sex: Male

DRUGS (8)
  1. BACLON [Concomitant]
     Dosage: 2 DF, QD
     Dates: start: 20110101
  2. INOSINE [Concomitant]
     Dosage: 5 DRP, UNK
     Dates: start: 20110101
  3. DIGESAN [Concomitant]
     Dosage: 10 MG, TID
     Dates: start: 20110101
  4. OMEPRAZOLE [Concomitant]
     Dosage: 1 DF, QD
     Dates: start: 20110101
  5. ADVIL [Concomitant]
     Dosage: 2 DF, QD
     Dates: start: 20110101
  6. TRENTAL [Concomitant]
     Dosage: 2 DF, QD
     Dates: start: 20110101
  7. EXELON [Suspect]
     Dosage: 4.5 MG, QD
     Route: 048
  8. HALDOL [Concomitant]
     Dosage: 10 MG, QD
     Dates: start: 20110101

REACTIONS (3)
  - PAIN [None]
  - MUSCULOSKELETAL STIFFNESS [None]
  - HYPOKINESIA [None]
